FAERS Safety Report 14528809 (Version 1)
Quarter: 2018Q1

REPORT INFORMATION
  Report Type: Spontaneous
  Country: IT (occurrence: IT)
  Receive Date: 20180214
  Receipt Date: 20180214
  Transmission Date: 20180509
  Serious: Yes (Other)
  Sender: FDA-Public Use
  Company Number: IT-TAKEDA-2018TEU000602

PATIENT
  Age: 37 Year
  Sex: Male

DRUGS (4)
  1. RIOPAN [Suspect]
     Active Substance: MAGALDRATE
     Indication: REFLUX GASTRITIS
  2. RIOPAN [Suspect]
     Active Substance: MAGALDRATE
     Indication: CHRONIC GASTRITIS
     Dosage: UNK
     Route: 065
  3. LANSOX [Suspect]
     Active Substance: LANSOPRAZOLE
     Indication: CHRONIC GASTRITIS
     Dosage: UNK
     Route: 065
  4. LANSOX [Suspect]
     Active Substance: LANSOPRAZOLE
     Indication: REFLUX GASTRITIS

REACTIONS (3)
  - Helicobacter infection [Unknown]
  - Abdominal pain upper [Unknown]
  - Chest pain [Unknown]

NARRATIVE: CASE EVENT DATE: 201709
